FAERS Safety Report 4689262-3 (Version None)
Quarter: 2005Q2

REPORT INFORMATION
  Report Type: 
  Country: None (occurrence: None)
  Receive Date: 20050613
  Receipt Date: 20050310
  Transmission Date: 20051028
  Serious: Yes (Hospitalization)
  Sender: FDA-Public Use
  Company Number: US-MERCK-0503USA02088

PATIENT
  Age: 58 Year
  Sex: Male
  Weight: 80 kg

DRUGS (8)
  1. VIOXX [Suspect]
     Indication: BACK PAIN
     Route: 048
     Dates: start: 20040201, end: 20040901
  2. VICODIN [Concomitant]
     Route: 065
  3. ANALGESIC OR ANESTHETIC (UNSPECIFIED) [Concomitant]
     Route: 065
  4. FLEXERIL [Concomitant]
     Route: 048
  5. METOPROLOL [Concomitant]
     Route: 065
  6. PLAVIX [Concomitant]
     Route: 048
     Dates: start: 20040601
  7. ZOCOR [Concomitant]
     Route: 048
     Dates: start: 20040601
  8. VIOXX [Suspect]
     Indication: NECK PAIN
     Route: 048
     Dates: start: 20040201, end: 20040901

REACTIONS (17)
  - BRADYCARDIA [None]
  - CORONARY ARTERY DISEASE [None]
  - CORONARY ARTERY REOCCLUSION [None]
  - CORONARY ARTERY STENOSIS [None]
  - DIASTOLIC DYSFUNCTION [None]
  - DYSPEPSIA [None]
  - EMOTIONAL DISTRESS [None]
  - FEELING HOT [None]
  - HYPERLIPIDAEMIA [None]
  - HYPOTENSION [None]
  - MYOCARDIAL INFARCTION [None]
  - NAUSEA [None]
  - PLEURITIC PAIN [None]
  - TRICUSPID VALVE INCOMPETENCE [None]
  - URINARY TRACT INFECTION [None]
  - VENTRICULAR DYSFUNCTION [None]
  - VENTRICULAR HYPOKINESIA [None]
